FAERS Safety Report 6642475-3 (Version None)
Quarter: 2010Q1

REPORT INFORMATION
  Report Type: 
  Country: None (occurrence: None)
  Receive Date: 20100319
  Receipt Date: 20100308
  Transmission Date: 20100710
  Serious: Yes (Hospitalization, Disabling)
  Sender: FDA-Public Use
  Company Number: IT-ELI_LILLY_AND_COMPANY-IT201002001088

PATIENT
  Sex: Female
  Weight: 65 kg

DRUGS (4)
  1. GEMCITABINE HCL [Suspect]
     Indication: BREAST CANCER METASTATIC
     Dosage: 1000 MG, OTHER DAY ONE AND EIGHT EVERY THREE WEEKS
     Route: 042
     Dates: start: 20100112
  2. VINFLUNINE [Suspect]
     Indication: BREAST CANCER METASTATIC
     Dosage: 320 MG/M2, UNK
     Route: 042
     Dates: start: 20100112
  3. IDEOS                              /00944201/ [Concomitant]
     Dates: start: 20080818
  4. KYTRIL [Concomitant]
     Dates: start: 20100112, end: 20100112

REACTIONS (1)
  - REVERSIBLE POSTERIOR LEUKOENCEPHALOPATHY SYNDROME [None]
